FAERS Safety Report 5000972-0 (Version None)
Quarter: 2006Q2

REPORT INFORMATION
  Report Type: 
  Country: None (occurrence: None)
  Receive Date: 20060512
  Receipt Date: 20060509
  Transmission Date: 20061013
  Serious: Yes (Hospitalization)
  Sender: FDA-Public Use
  Company Number: IT-ROCHE-447198

PATIENT
  Age: 11 Year
  Sex: Male

DRUGS (1)
  1. ROCEPHIN [Suspect]
     Indication: UPPER RESPIRATORY TRACT INFECTION
     Dosage: DOSAGE FORM REPORTED AS VIAL.
     Route: 030
     Dates: start: 20060324, end: 20060324

REACTIONS (2)
  - LARYNGEAL OEDEMA [None]
  - URTICARIA [None]
